FAERS Safety Report 7304958-2 (Version None)
Quarter: 2011Q1

REPORT INFORMATION
  Report Type: 
  Country: None (occurrence: None)
  Receive Date: 20110222
  Receipt Date: 20110210
  Transmission Date: 20110831
  Serious: Yes (Life-Threatening)
  Sender: FDA-Public Use
  Company Number: DE-SANOFI-AVENTIS-2011SA008879

PATIENT
  Age: 42 Year
  Sex: Female
  Weight: 69 kg

DRUGS (1)
  1. PENTOXIFYLLINE [Suspect]
     Indication: SUICIDE ATTEMPT
     Route: 065

REACTIONS (5)
  - COMA [None]
  - INTENTIONAL OVERDOSE [None]
  - METABOLIC ACIDOSIS [None]
  - OLIGURIA [None]
  - HYPOVOLAEMIC SHOCK [None]
